FAERS Safety Report 9056872 (Version 1)
Quarter: 2013Q1

REPORT INFORMATION
  Report Type: Report from Study
  Country: JP (occurrence: JP)
  Receive Date: 20130201
  Receipt Date: 20130201
  Transmission Date: 20140127
  Serious: Yes (Other)
  Sender: FDA-Public Use
  Company Number: JP-GLAXOSMITHKLINE-B0860826A

PATIENT
  Age: 59 None
  Sex: Female
  Weight: 59 kg

DRUGS (7)
  1. XELODA [Suspect]
     Route: 048
     Dates: start: 20100814, end: 20100924
  2. XELODA [Suspect]
     Route: 048
     Dates: start: 20100925
  3. TRASTUZUMAB [Concomitant]
     Route: 042
     Dates: start: 20100626
  4. VINORELBINE DITARTRATE [Concomitant]
     Route: 042
     Dates: start: 20100626, end: 20100904
  5. DOCETAXEL [Concomitant]
     Route: 042
     Dates: start: 20100918, end: 20110423
  6. GEMCITABINE [Concomitant]
     Route: 042
     Dates: start: 20100918, end: 20110502
  7. TYKERB [Suspect]
     Indication: BREAST CANCER
     Route: 048
     Dates: start: 20100814

REACTIONS (1)
  - Cellulitis [Recovered/Resolved]
